FAERS Safety Report 5669772-2 (Version None)
Quarter: 2008Q1

REPORT INFORMATION
  Report Type: 
  Country: None (occurrence: None)
  Receive Date: 20080317
  Receipt Date: 20080310
  Transmission Date: 20080703
  Serious: Yes (Death, Hospitalization)
  Sender: FDA-Public Use
  Company Number: US-BRISTOL-MYERS SQUIBB COMPANY-13983499

PATIENT
  Age: 64 Year
  Sex: Female
  Weight: 51 kg

DRUGS (1)
  1. DASATINIB [Suspect]
     Indication: HAEMANGIOPERICYTOMA
     Dates: start: 20071029

REACTIONS (2)
  - DEATH [None]
  - DEEP VEIN THROMBOSIS [None]
